FAERS Safety Report 8152426-0 (Version None)
Quarter: 2012Q1

REPORT INFORMATION
  Report Type: 
  Country: None (occurrence: None)
  Receive Date: 20120215
  Receipt Date: 20120215
  Transmission Date: 20120608
  Serious: No
  Sender: FDA-Public Use
  Company Number: None

PATIENT
  Sex: Male

DRUGS (1)
  1. BOTOX [Suspect]
     Dosage: INJECTABLE EVERY 3 MONTHS
     Route: 030
     Dates: start: 20120120

REACTIONS (5)
  - TONGUE BITING [None]
  - WEIGHT DECREASED [None]
  - SPEECH DISORDER [None]
  - DYSPHAGIA [None]
  - HYPOAESTHESIA [None]
